FAERS Safety Report 9197658 (Version 1)
Quarter: 2013Q1

REPORT INFORMATION
  Report Type: Spontaneous
  Country: US (occurrence: US)
  Receive Date: 20130328
  Receipt Date: 20130328
  Transmission Date: 20140127
  Serious: Yes (Hospitalization)
  Sender: FDA-Public Use
  Company Number: US-BAYER-2013-036727

PATIENT
  Age: 25 Year
  Sex: Female
  Weight: 111 kg

DRUGS (4)
  1. YAZ [Suspect]
     Indication: MENORRHAGIA
  2. YASMIN [Suspect]
     Indication: CONTRACEPTION
  3. AYGESTIN [Concomitant]
     Dosage: 5 MG, THREE TIMES A DAY
     Dates: start: 20060607
  4. HEMOCYTE [Concomitant]

REACTIONS (1)
  - Pulmonary embolism [None]
